FAERS Safety Report 25502330 (Version 1)
Quarter: 2025Q3

REPORT INFORMATION
  Report Type: Spontaneous
  Country: US (occurrence: US)
  Receive Date: 20250702
  Receipt Date: 20250702
  Transmission Date: 20251021
  Serious: No
  Sender: GLAXOSMITHKLINE
  Company Number: US-GSK-US2025079359

PATIENT
  Sex: Female

DRUGS (1)
  1. BENLYSTA [Suspect]
     Active Substance: BELIMUMAB
     Indication: Lupus nephritis
     Dosage: WT BASED, MO

REACTIONS (4)
  - Erythema [Unknown]
  - Fungal infection [Not Recovered/Not Resolved]
  - Proteinuria [Recovering/Resolving]
  - Skin irritation [Not Recovered/Not Resolved]
